FAERS Safety Report 9252543 (Version 1)
Quarter: 2013Q1

REPORT INFORMATION
  Report Type: Spontaneous
  Country: US (occurrence: None)
  Receive Date: 20130305
  Receipt Date: 20130305
  Transmission Date: 20140127
  Serious: No
  Sender: FDA-Public Use
  Company Number: 163-21880-12090664

PATIENT
  Age: 66 Year
  Sex: Male
  Weight: 127.01 kg

DRUGS (6)
  1. REVLIMID [Suspect]
     Indication: PLASMA CELL MYELOMA
     Dosage: 10MG, 1 IN 1D PO
     Route: 048
     Dates: start: 20100123
  2. CALCIUM WITH VITAMIN D (CALCIUM WITH VITAMIN D) [Concomitant]
  3. GLUCOSAMINE (GLUCOSAMINE) [Concomitant]
  4. OMEPRAZOLE (OMEPRAZOLE) [Concomitant]
  5. IRON (IRON) [Concomitant]
  6. MTLTIVITAMINS (MULTIVITAMINS) [Concomitant]

REACTIONS (2)
  - Myalgia [None]
  - Arthralgia [None]
